FAERS Safety Report 23437743 (Version 2)
Quarter: 2024Q1

REPORT INFORMATION
  Report Type: Spontaneous
  Country: IN (occurrence: IN)
  Receive Date: 20240124
  Receipt Date: 20240126
  Transmission Date: 20240410
  Serious: Yes (Other)
  Sender: FDA-Public Use
  Company Number: IN-PIRAMAL PHARMA LIMITED-2024-PPL-000047

PATIENT

DRUGS (8)
  1. SEVOFLURANE [Suspect]
     Active Substance: SEVOFLURANE
     Indication: Induction of anaesthesia
     Dosage: UNK
  2. ISOFLURANE [Suspect]
     Active Substance: ISOFLURANE
     Indication: Maintenance of anaesthesia
     Dosage: 70% NITROUS OXIDE, 30% OXYGEN, AND ISOFLURANE
  3. FENTANYL [Concomitant]
     Active Substance: FENTANYL\FENTANYL CITRATE
     Indication: Induction of anaesthesia
     Dosage: 20 MCG
  4. VECURONIUM BROMIDE [Concomitant]
     Active Substance: VECURONIUM BROMIDE
     Indication: Endotracheal intubation
     Dosage: 2 MG
  5. BUPIVACAINE [Concomitant]
     Active Substance: BUPIVACAINE
     Indication: Product used for unknown indication
     Dosage: 4 ML
  6. MORPHINE [Concomitant]
     Active Substance: MORPHINE
     Indication: Product used for unknown indication
     Dosage: 0.5 MG
  7. GLYCOPYRROLATE                     /00196201/ [Concomitant]
     Indication: Neuromuscular blockade reversal
     Dosage: 0.3 MG
  8. NEOSTIGMINE [Concomitant]
     Active Substance: NEOSTIGMINE
     Indication: Neuromuscular blockade reversal
     Dosage: 0.75 MG

REACTIONS (4)
  - Hypoxia [Unknown]
  - Tachypnoea [Unknown]
  - Hyperthermia malignant [Unknown]
  - Hyperthermia [Unknown]
